FAERS Safety Report 19932930 (Version 1)
Quarter: 2021Q4

REPORT INFORMATION
  Report Type: Spontaneous
  Country: PE (occurrence: PE)
  Receive Date: 20211007
  Receipt Date: 20211007
  Transmission Date: 20220303
  Serious: Yes (Disabling)
  Sender: FDA-Public Use
  Company Number: None

PATIENT
  Age: 48 Year
  Sex: Male
  Weight: 75.5 kg

DRUGS (9)
  1. CIPROFLOXACIN [Suspect]
     Active Substance: CIPROFLOXACIN
     Indication: Sinusitis
     Dosage: ?          QUANTITY:20 TABLET(S);
     Route: 048
     Dates: start: 20210606, end: 20210616
  2. MAGNESIUM [Concomitant]
     Active Substance: MAGNESIUM
  3. COENZYME Q10 [Concomitant]
     Active Substance: DIETARY SUPPLEMENT\UBIDECARENONE
  4. VITAMIN C [Concomitant]
     Active Substance: ASCORBIC ACID
  5. VITAMIN A [Concomitant]
     Active Substance: VITAMIN A
  6. VITAMIN E [Concomitant]
     Active Substance: .ALPHA.-TOCOPHEROL
  7. ZINC [Concomitant]
     Active Substance: ZINC
  8. CATS PAW [Concomitant]
  9. HERBALS [Concomitant]
     Active Substance: HERBALS

REACTIONS (8)
  - Muscle spasms [None]
  - Palpitations [None]
  - Tinnitus [None]
  - Weight decreased [None]
  - Neuropathy peripheral [None]
  - Vision blurred [None]
  - Feeling abnormal [None]
  - Tendon pain [None]

NARRATIVE: CASE EVENT DATE: 20210616
